FAERS Safety Report 7546255-6 (Version None)
Quarter: 2011Q2

REPORT INFORMATION
  Report Type: 
  Country: None (occurrence: None)
  Receive Date: 20110614
  Receipt Date: 20040519
  Transmission Date: 20111010
  Serious: Yes (Death, Hospitalization)
  Sender: FDA-Public Use
  Company Number: PHFR2004GB02149

PATIENT
  Sex: Male

DRUGS (3)
  1. PROPRANOLOL [Concomitant]
     Dosage: UNKNOWN
     Route: 065
  2. CLOZAPINE [Suspect]
     Indication: SCHIZOPHRENIA
     Dosage: UNKNOWN
     Route: 048
     Dates: start: 19911216
  3. VALPROATE SODIUM [Concomitant]
     Dosage: UNKNOWN
     Route: 065

REACTIONS (3)
  - FALL [None]
  - BACK INJURY [None]
  - CIRCULATORY COLLAPSE [None]
